FAERS Safety Report 14233219 (Version 1)
Quarter: 2017Q4

REPORT INFORMATION
  Report Type: Report from Study
  Country: US (occurrence: US)
  Receive Date: 20171129
  Receipt Date: 20171129
  Transmission Date: 20180321
  Serious: Yes (Other)
  Sender: FDA-Public Use
  Company Number: US-BAYER-2017-225003

PATIENT
  Age: 49 Year
  Sex: Female

DRUGS (1)
  1. ACETYLSALICYLIC ACID [Suspect]
     Active Substance: ASPIRIN
     Dosage: UNK, QD (DAILY,TAKEN THE MORNING OF PROCEDURE)

REACTIONS (3)
  - Cerebrospinal fluid retention [None]
  - Cauda equina syndrome [None]
  - Procedural haemorrhage [None]
